FAERS Safety Report 11979618 (Version 1)
Quarter: 2016Q1

REPORT INFORMATION
  Report Type: Report from Study
  Country: US (occurrence: US)
  Receive Date: 20160129
  Receipt Date: 20160129
  Transmission Date: 20160526
  Serious: No
  Sender: FDA-Public Use
  Company Number: US-ABBVIE-15K-163-1403848-00

PATIENT
  Sex: Male

DRUGS (1)
  1. HUMIRA [Suspect]
     Active Substance: ADALIMUMAB
     Indication: PSORIASIS
     Route: 058
     Dates: start: 20150306, end: 20150529

REACTIONS (3)
  - Skin disorder [Not Recovered/Not Resolved]
  - Drug ineffective [Recovered/Resolved]
  - Skin papilloma [Recovered/Resolved]

NARRATIVE: CASE EVENT DATE: 2015
